FAERS Safety Report 5329639-6 (Version None)
Quarter: 2007Q1

REPORT INFORMATION
  Report Type: 
  Country: None (occurrence: None)
  Receive Date: 20070227
  Receipt Date: 20060602
  Transmission Date: 20070707
  Serious: Yes (Hospitalization)
  Sender: FDA-Public Use
  Company Number: 450691

PATIENT
  Age: 20 Year
  Sex: Female
  Weight: 57.2 kg

DRUGS (2)
  1. ACCUTANE [Suspect]
     Indication: ACNE CYSTIC
     Dosage: 20 MG 2 PER DAY ORAL
     Route: 048
     Dates: start: 19980321, end: 19990520
  2. BIRTH CONTROL PILLS  (ORAL CONTRACEPTIVE NOS) [Concomitant]

REACTIONS (4)
  - AFFECT LABILITY [None]
  - COLITIS ULCERATIVE [None]
  - CONJUNCTIVITIS [None]
  - CROHN'S DISEASE [None]
